FAERS Safety Report 12727722 (Version 1)
Quarter: 2016Q3

REPORT INFORMATION
  Report Type: Spontaneous
  Country: US (occurrence: US)
  Receive Date: 20160906
  Receipt Date: 20160906
  Transmission Date: 20161109
  Serious: No
  Sender: FDA-Public Use
  Company Number: None

PATIENT
  Age: 62 Year
  Sex: Male
  Weight: 80.29 kg

DRUGS (27)
  1. MEGESTROL [Concomitant]
     Active Substance: MEGESTROL
  2. OMEPRAZOLE. [Concomitant]
     Active Substance: OMEPRAZOLE
  3. OMEPRAZOLE. [Concomitant]
     Active Substance: OMEPRAZOLE
  4. FLUTICASONE [Concomitant]
     Active Substance: FLUTICASONE\FLUTICASONE PROPIONATE
  5. LINZESS [Concomitant]
     Active Substance: LINACLOTIDE
  6. COLESTIPOL [Concomitant]
     Active Substance: COLESTIPOL
  7. DUTASTERIDE. [Concomitant]
     Active Substance: DUTASTERIDE
  8. POLYETHYLENE GLYCOL 3350. [Suspect]
     Active Substance: POLYETHYLENE GLYCOL 3350
     Dosage: POLYETHYLENE GLYCOL 3350 - 17 GRAM/DOSE ORAL POWDER
     Route: 048
  9. ALENDRONATE [Concomitant]
     Active Substance: ALENDRONATE SODIUM
  10. AMLODIPINE [Concomitant]
     Active Substance: AMLODIPINE BESYLATE
  11. PEG 3350 [Concomitant]
     Active Substance: POLYETHYLENE GLYCOL 3350
  12. AMITIZA [Concomitant]
     Active Substance: LUBIPROSTONE
  13. CIPROFLOXACIN. [Concomitant]
     Active Substance: CIPROFLOXACIN
  14. ERGOCALCIFEROL. [Concomitant]
     Active Substance: ERGOCALCIFEROL
  15. METRONIDAZOLE. [Concomitant]
     Active Substance: METRONIDAZOLE
  16. SIMVASTATIN 20 MG [Suspect]
     Active Substance: SIMVASTATIN
     Route: 048
  17. CARVEDILOL. [Concomitant]
     Active Substance: CARVEDILOL
  18. LISINOPRIL. [Concomitant]
     Active Substance: LISINOPRIL
  19. METHYLPREDNISOLONE. [Concomitant]
     Active Substance: METHYLPREDNISOLONE
  20. PATADAY [Concomitant]
     Active Substance: OLOPATADINE HYDROCHLORIDE
  21. Q-DRYL [Suspect]
     Active Substance: DIPHENHYDRAMINE HYDROCHLORIDE
     Route: 048
  22. AZELASTINE [Concomitant]
     Active Substance: AZELASTINE
  23. DONEPEZIL. [Concomitant]
     Active Substance: DONEPEZIL
  24. FINASTERIDE. [Concomitant]
     Active Substance: FINASTERIDE
  25. HYDROCHLOROTHIAZIDE. [Concomitant]
     Active Substance: HYDROCHLOROTHIAZIDE
  26. LINZESS [Concomitant]
     Active Substance: LINACLOTIDE
  27. NYSTATIN. [Concomitant]
     Active Substance: NYSTATIN

REACTIONS (3)
  - Arthralgia [None]
  - Back pain [None]
  - Myalgia [None]
